FAERS Safety Report 5694734-9 (Version None)
Quarter: 2008Q2

REPORT INFORMATION
  Report Type: 
  Country: None (occurrence: None)
  Receive Date: 20080404
  Receipt Date: 20080331
  Transmission Date: 20081010
  Serious: Yes (Hospitalization)
  Sender: FDA-Public Use
  Company Number: GR-KINGPHARMUSA00001-K200800381

PATIENT

DRUGS (3)
  1. LEVOXYL [Suspect]
     Indication: HYPOTHYROIDISM
     Dosage: .1 MG, QD
  2. GLEEVEC [Suspect]
     Indication: GASTROINTESTINAL STROMAL TUMOUR
     Dosage: 400 MG, QD
  3. GLEEVEC [Suspect]
     Dosage: 400 MG, QD

REACTIONS (5)
  - DERMATITIS [None]
  - DRUG INTERACTION [None]
  - PYREXIA [None]
  - SKIN EXFOLIATION [None]
  - THYROID FUNCTION TEST ABNORMAL [None]
